FAERS Safety Report 19264460 (Version 1)
Quarter: 2021Q2

REPORT INFORMATION
  Report Type: Spontaneous
  Country: US (occurrence: US)
  Receive Date: 20210517
  Receipt Date: 20210517
  Transmission Date: 20210717
  Serious: Yes (Hospitalization)
  Sender: FDA-Public Use
  Company Number: None

PATIENT
  Age: 91 Year
  Sex: Male
  Weight: 100.7 kg

DRUGS (1)
  1. WARFARIN (WARFARIN NA (EXELAN) 20MG TAB) [Suspect]
     Active Substance: WARFARIN SODIUM
     Indication: ATRIAL FIBRILLATION
     Dates: start: 19970301, end: 20201201

REACTIONS (4)
  - Fall [None]
  - Haemorrhage [None]
  - Therapy interrupted [None]
  - Subdural haematoma [None]

NARRATIVE: CASE EVENT DATE: 20201201
